FAERS Safety Report 11103495 (Version 1)
Quarter: 2015Q2

REPORT INFORMATION
  Report Type: Spontaneous
  Country: BE (occurrence: BE)
  Receive Date: 20150511
  Receipt Date: 20150511
  Transmission Date: 20150821
  Serious: Yes (Hospitalization, Other)
  Sender: FDA-Public Use
  Company Number: BE-BAYER-2015-183553

PATIENT
  Age: 41 Year
  Sex: Female

DRUGS (14)
  1. HYDROXYCHLOROQUINE [Concomitant]
     Active Substance: HYDROXYCHLOROQUINE
     Dosage: 200 MG, BID
  2. CALCIUM CARBONATE [CALCIUM CARBONATE] [Concomitant]
     Dosage: 1 G, BID
  3. GENTAMICIN. [Concomitant]
     Active Substance: GENTAMICIN
     Dosage: 80 MG, SINGLE DOSE
  4. SIMVASTATIN. [Interacting]
     Active Substance: SIMVASTATIN
     Dosage: 20 MG, QD
  5. IRBESARTAN. [Concomitant]
     Active Substance: IRBESARTAN
     Dosage: 300 MG, QD
  6. VANCOMYCIN [Concomitant]
     Active Substance: VANCOMYCIN
     Dosage: 2,000 MG/3D
  7. BISOPROLOL [BISOPROLOL] [Concomitant]
     Dosage: 10 MG, QD
  8. MYCOPHENOLATE MOFETIL. [Concomitant]
     Active Substance: MYCOPHENOLATE MOFETIL
     Dosage: 500 MG, QD
  9. COLECALCIFEROL [Concomitant]
     Active Substance: CHOLECALCIFEROL
     Dosage: 625 ?G, WEEKLY
  10. SEVELAMER [Concomitant]
     Active Substance: SEVELAMER
     Dosage: 800 MG, BID
  11. CALCITRIOL. [Concomitant]
     Active Substance: CALCITRIOL
     Dosage: 0.25 ?G, THREE TIMES A WEEK
  12. AMLODIPINE [Suspect]
     Active Substance: AMLODIPINE BESYLATE
     Dosage: 10 MG, QD
  13. FUROSEMIDUM [FUROSEMIDE] [Concomitant]
     Dosage: 125 MG, BID
  14. CIPROFLOXACIN. [Interacting]
     Active Substance: CIPROFLOXACIN
     Dosage: 500 MG, BID

REACTIONS (3)
  - Acute kidney injury [None]
  - Drug interaction [None]
  - Rhabdomyolysis [None]
